FAERS Safety Report 4339261-6 (Version None)
Quarter: 2004Q2

REPORT INFORMATION
  Report Type: 
  Country: None (occurrence: None)
  Receive Date: 20040412
  Receipt Date: 20040317
  Transmission Date: 20050107
  Serious: Yes (Hospitalization)
  Sender: FDA-Public Use
  Company Number: 2004-BE-00031BE

PATIENT
  Age: 70 Year
  Sex: Male

DRUGS (4)
  1. ALNA RETARD 0,4MG KAPSELN (TAMSULOSIN) [Suspect]
     Indication: BENIGN PROSTATIC HYPERPLASIA
     Dosage: 0.4 MG (0.4 MG, 1) PO
     Route: 048
     Dates: start: 20030605, end: 20030628
  2. ACEMIN (LISINOPRIL) [Concomitant]
  3. CIPROXIN [Concomitant]
  4. ISOPTIN TAB [Concomitant]

REACTIONS (4)
  - BLOOD PRESSURE DECREASED [None]
  - SINUS ARRHYTHMIA [None]
  - SPEECH DISORDER [None]
  - TACHYCARDIA [None]
